FAERS Safety Report 9485313 (Version 2)
Quarter: 2013Q4

REPORT INFORMATION
  Report Type: Spontaneous
  Country: US (occurrence: US)
  Receive Date: 20130828
  Receipt Date: 20131026
  Transmission Date: 20140711
  Serious: Yes (Other)
  Sender: FDA-Public Use
  Company Number: US-B.I. PHARMACEUTICALS,INC./RIDGEFIELD-2013-BI-25990BP

PATIENT
  Age: 57 Year
  Sex: Female
  Weight: 84 kg

DRUGS (1)
  1. ZANTAC COOL MINT (TABLETS) [Suspect]
     Indication: DYSPEPSIA
     Dosage: 450 MG
     Route: 048
     Dates: start: 2008

REACTIONS (4)
  - Breast cancer [Not Recovered/Not Resolved]
  - Overdose [Recovered/Resolved]
  - Drug ineffective [Recovered/Resolved]
  - Drug effect decreased [Not Recovered/Not Resolved]
